FAERS Safety Report 4771717-4 (Version None)
Quarter: 2005Q3

REPORT INFORMATION
  Report Type: 
  Country: None (occurrence: None)
  Receive Date: 20050916
  Receipt Date: 20050912
  Transmission Date: 20060218
  Serious: Yes (Other)
  Sender: FDA-Public Use
  Company Number: PHEH2005US10121

PATIENT
  Age: 35 Year
  Sex: Male
  Weight: 119 kg

DRUGS (2)
  1. DIOVAN [Suspect]
     Indication: HYPERTENSION
     Dosage: 160 MG, QD
     Route: 048
     Dates: start: 20050908, end: 20050912
  2. HYDROCHLOROTHIAZIDE [Concomitant]
     Dates: end: 20050912

REACTIONS (2)
  - HEART RATE INCREASED [None]
  - PALPITATIONS [None]
